FAERS Safety Report 16441520 (Version 1)
Quarter: 2019Q2

REPORT INFORMATION
  Report Type: Spontaneous
  Country: US (occurrence: US)
  Receive Date: 20190617
  Receipt Date: 20190617
  Transmission Date: 20190711
  Serious: Yes (Other)
  Sender: FDA-Public Use
  Company Number: US-PFIZER INC-2019254879

PATIENT
  Age: 52 Year
  Sex: Male

DRUGS (4)
  1. LASIX [Suspect]
     Active Substance: FUROSEMIDE
     Indication: CIRRHOSIS ALCOHOLIC
     Dosage: UNK
     Route: 042
  2. CORGARD [Suspect]
     Active Substance: NADOLOL
     Indication: CIRRHOSIS ALCOHOLIC
     Dosage: UNK
  3. ALDACTONE [Suspect]
     Active Substance: SPIRONOLACTONE
     Indication: CIRRHOSIS ALCOHOLIC
     Dosage: UNK
  4. ZANTAC [Suspect]
     Active Substance: RANITIDINE HYDROCHLORIDE
     Indication: CIRRHOSIS ALCOHOLIC
     Dosage: UNK

REACTIONS (3)
  - Confusional state [Unknown]
  - Amnesia [Unknown]
  - Anaemia [Unknown]
